FAERS Safety Report 10590955 (Version 2)
Quarter: 2014Q4

REPORT INFORMATION
  Report Type: Spontaneous
  Country: DE (occurrence: DE)
  Receive Date: 20141118
  Receipt Date: 20141208
  Transmission Date: 20150529
  Serious: Yes (Other)
  Sender: FDA-Public Use
  Company Number: DE-JNJFOC-20141105012

PATIENT

DRUGS (11)
  1. TOPIRAMATE. [Suspect]
     Active Substance: TOPIRAMATE
     Indication: MIGRAINE PROPHYLAXIS
     Route: 064
     Dates: start: 20140315, end: 20140905
  2. PERFALGAN [Suspect]
     Active Substance: ACETAMINOPHEN
     Indication: MIGRAINE
     Route: 064
     Dates: start: 20140510, end: 20140514
  3. DORMICUM [Suspect]
     Active Substance: MIDAZOLAM\MIDAZOLAM HYDROCHLORIDE
     Indication: MIGRAINE
     Route: 064
     Dates: start: 20140510, end: 20140514
  4. ALLEGRO (FROVATRIPTAN SUCCINATE) [Suspect]
     Active Substance: FROVATRIPTAN SUCCINATE
     Indication: MIGRAINE
     Route: 064
     Dates: start: 20140506, end: 20140527
  5. RELPAX [Suspect]
     Active Substance: ELETRIPTAN HYDROBROMIDE
     Indication: MIGRAINE
     Route: 064
     Dates: start: 20140528, end: 20140612
  6. NOVALGIN [Suspect]
     Active Substance: METAMIZOLE SODIUM
     Indication: MIGRAINE
     Route: 064
     Dates: start: 20140510, end: 20140514
  7. ASPIRIN. [Suspect]
     Active Substance: ASPIRIN
     Indication: MIGRAINE
     Route: 064
     Dates: start: 20140525, end: 20140525
  8. OMEPRAZOLE. [Suspect]
     Active Substance: OMEPRAZOLE
     Indication: GASTRITIS PROPHYLAXIS
     Route: 064
     Dates: start: 20140506, end: 20140818
  9. SUMATRIPTAN. [Suspect]
     Active Substance: SUMATRIPTAN
     Indication: MIGRAINE
     Route: 064
     Dates: start: 20140701, end: 20140730
  10. MAXALT [Suspect]
     Active Substance: RIZATRIPTAN BENZOATE
     Indication: MIGRAINE
     Route: 064
     Dates: start: 20140510, end: 20140703
  11. FOLIO FORTE [Concomitant]
     Active Substance: FOLIC ACID\VITAMINS
     Indication: PROPHYLAXIS OF NEURAL TUBE DEFECT
     Route: 064

REACTIONS (3)
  - Small for dates baby [Not Recovered/Not Resolved]
  - Foetal exposure during pregnancy [Recovered/Resolved]
  - Cytogenetic abnormality [Not Recovered/Not Resolved]
